FAERS Safety Report 9874459 (Version 2)
Quarter: 2014Q1

REPORT INFORMATION
  Report Type: Report from Study
  Country: HU (occurrence: HU)
  Receive Date: 20140206
  Receipt Date: 20140206
  Transmission Date: 20141002
  Serious: Yes (Death, Hospitalization, Other)
  Sender: FDA-Public Use
  Company Number: HU-BRISTOL-MYERS SQUIBB COMPANY-19389568

PATIENT
  Age: 72 Year
  Sex: Female

DRUGS (23)
  1. BLINDED: IPILIMUMAB [Suspect]
     Indication: SMALL CELL LUNG CANCER
     Route: 042
     Dates: start: 20130801, end: 20130824
  2. CISPLATIN [Suspect]
     Indication: SMALL CELL LUNG CANCER
     Route: 042
     Dates: start: 20130618, end: 20130822
  3. ETOPOSIDE [Suspect]
     Indication: SMALL CELL LUNG CANCER
     Dates: start: 20130618, end: 20130824
  4. BLINDED: PLACEBO [Suspect]
     Indication: SMALL CELL LUNG CANCER
     Dates: start: 20130801, end: 20130824
  5. SPIRIVA [Concomitant]
     Dates: start: 20130404
  6. BISOBLOCK [Concomitant]
     Dates: start: 1998
  7. CO-PRENESSA [Concomitant]
     Dates: start: 1998
  8. ACECLOFENAC [Concomitant]
     Dates: start: 2012
  9. MOVALIS [Concomitant]
     Dates: start: 2012
  10. VITAMIN C [Concomitant]
     Dates: start: 201304
  11. MAGNESIUM CITRATE [Concomitant]
     Dates: start: 201304
  12. PYRIDOXINE [Concomitant]
     Dates: start: 201304
  13. ONBREZ [Concomitant]
     Dates: start: 20130416
  14. THEOPHYLLINE [Concomitant]
     Dates: start: 20130416
  15. TIOTROPIUM BROMIDE [Concomitant]
     Dates: start: 20130404
  16. INDACATEROL MALEATE [Concomitant]
     Dates: start: 20130416
  17. THEOPHYLLINE [Concomitant]
     Dates: start: 20130416
  18. BISOPROLOL [Concomitant]
     Dates: start: 1998
  19. PERINDOPRIL [Concomitant]
     Dates: start: 1998
  20. INDAPAMIDE [Concomitant]
     Dates: start: 1998
  21. AMLODIPINE [Concomitant]
     Dates: start: 1998
  22. MELOXICAM [Concomitant]
     Dates: start: 2012
  23. ASCORBIC ACID [Concomitant]
     Dates: start: 201304

REACTIONS (4)
  - Malignant neoplasm progression [Fatal]
  - Respiratory failure [Fatal]
  - Anaemia [Recovered/Resolved]
  - Neutropenia [Recovered/Resolved]
